FAERS Safety Report 8518804-2 (Version None)
Quarter: 2012Q3

REPORT INFORMATION
  Report Type: 
  Country: None (occurrence: None)
  Receive Date: 20120718
  Receipt Date: 20120713
  Transmission Date: 20120928
  Serious: Yes (Other)
  Sender: FDA-Public Use
  Company Number: PHHY2012CA010898

PATIENT
  Sex: Male

DRUGS (2)
  1. SANDOSTATIN LAR [Suspect]
     Indication: LUNG NEOPLASM MALIGNANT
     Dosage: 30 MG, EVERY 4 WEEKS
     Route: 030
     Dates: start: 20091211
  2. SANDOSTATIN LAR [Suspect]
     Dosage: 30 MG, EVERY 2 WEEKS
     Route: 030

REACTIONS (6)
  - BLOOD PRESSURE SYSTOLIC INCREASED [None]
  - BLOOD PRESSURE DIASTOLIC DECREASED [None]
  - DIARRHOEA [None]
  - INJECTION SITE ERYTHEMA [None]
  - NEPHROLITHIASIS [None]
  - INJECTION SITE PAIN [None]
